FAERS Safety Report 25928640 (Version 2)
Quarter: 2025Q4

REPORT INFORMATION
  Report Type: Report from Study
  Country: US (occurrence: US)
  Receive Date: 20251016
  Receipt Date: 20251029
  Transmission Date: 20260118
  Serious: Yes (Other)
  Sender: JOHNSON AND JOHNSON
  Company Number: US-JNJFOC-20251006920

PATIENT
  Age: 78 Year
  Sex: Female

DRUGS (1)
  1. IMAAVY [Suspect]
     Active Substance: NIPOCALIMAB-AAHU
     Indication: Myasthenia gravis
     Route: 065
     Dates: start: 20250918

REACTIONS (8)
  - Diverticulitis [Unknown]
  - Myasthenia gravis [Recovered/Resolved]
  - Infection [Unknown]
  - Oropharyngeal pain [Recovered/Resolved]
  - Peripheral venous disease [Recovered/Resolved]
  - Periorbital swelling [Unknown]
  - Infusion related reaction [Unknown]
  - Headache [Unknown]

NARRATIVE: CASE EVENT DATE: 20251003
